FAERS Safety Report 11149431 (Version 2)
Quarter: 2016Q2

REPORT INFORMATION
  Report Type: Spontaneous
  Country: US (occurrence: US)
  Receive Date: 20150529
  Receipt Date: 20160520
  Transmission Date: 20160815
  Serious: No
  Sender: FDA-Public Use
  Company Number: US-PFIZER INC-2015172647

PATIENT
  Age: 38 Year
  Sex: Male
  Weight: 98 kg

DRUGS (16)
  1. CYMBALTA [Concomitant]
     Active Substance: DULOXETINE HYDROCHLORIDE
     Indication: NEUROPATHY PERIPHERAL
  2. ERGOCALCIFEROL. [Concomitant]
     Active Substance: ERGOCALCIFEROL
     Dosage: 1 DF, WEEKLY (50000 UNIT, EVERY WEEK)
     Route: 048
  3. LYRICA [Suspect]
     Active Substance: PREGABALIN
     Indication: DIABETIC NEUROPATHY
     Dosage: 200 MG, 3X/DAY
     Route: 048
  4. ASPIRIN. [Concomitant]
     Active Substance: ASPIRIN
     Dosage: 81 MG, 1X/DAY
     Route: 048
  5. ENALAPRIL MALEATE. [Concomitant]
     Active Substance: ENALAPRIL MALEATE
     Dosage: 10 MG, 1X/DAY
     Route: 048
  6. LYRICA [Suspect]
     Active Substance: PREGABALIN
     Indication: NEUROPATHY PERIPHERAL
  7. CYMBALTA [Concomitant]
     Active Substance: DULOXETINE HYDROCHLORIDE
     Indication: PAIN IN EXTREMITY
     Dosage: UNK (60 MG, 1.5 CAPSULE), DAILY
     Route: 048
  8. ATORVASTATIN CALCIUM. [Concomitant]
     Active Substance: ATORVASTATIN CALCIUM
     Dosage: 10 MG, 1X/DAY
     Route: 048
  9. TOUJEO [Concomitant]
     Active Substance: INSULIN GLARGINE
     Dosage: 50 IU, DAILY (300 UNIT/ML SOPN)
     Route: 058
  10. LYRICA [Suspect]
     Active Substance: PREGABALIN
     Indication: PAIN
  11. LYRICA [Suspect]
     Active Substance: PREGABALIN
     Indication: NERVE INJURY
  12. INSULIN [Concomitant]
     Active Substance: INSULIN NOS
     Indication: BLOOD GLUCOSE ABNORMAL
     Dosage: UNK
  13. MORPHINE SULFATE. [Concomitant]
     Active Substance: MORPHINE SULFATE
     Dosage: 30 MG, 3X/DAY (EVERY 8 HOURS)
     Route: 048
  14. NOVOLIN R [Concomitant]
     Active Substance: INSULIN HUMAN
     Dosage: 100 IU/ML, AS NEEDED (USE AS DIRECTED PER SLIDING SCALE)
  15. FLU VAX [Concomitant]
     Indication: IMMUNISATION
     Dosage: UNK
     Dates: start: 20140909
  16. PNEUMOVAX 23 IM SUSP [Concomitant]
     Dosage: UNK (INJECT AS DIRECTED)
     Route: 030

REACTIONS (2)
  - Gastric disorder [Unknown]
  - Hypotension [Unknown]
